FAERS Safety Report 22936013 (Version 7)
Quarter: 2024Q2

REPORT INFORMATION
  Report Type: Report from Study
  Country: CN (occurrence: CN)
  Receive Date: 20230912
  Receipt Date: 20240502
  Transmission Date: 20240715
  Serious: Yes (Hospitalization, Other)
  Sender: FDA-Public Use
  Company Number: CN-TAKEDA-2023TUS066274

PATIENT
  Age: 30 Year
  Sex: Male
  Weight: 74 kg

DRUGS (15)
  1. BRENTUXIMAB VEDOTIN [Suspect]
     Active Substance: BRENTUXIMAB VEDOTIN
     Indication: Hodgkin^s disease
     Dosage: 88.8 MILLIGRAM, Q2WEEKS
     Route: 041
     Dates: start: 20230627
  2. DOXORUBICIN HYDROCHLORIDE [Suspect]
     Active Substance: DOXORUBICIN HYDROCHLORIDE
     Indication: Lymphoma
     Dosage: 30 MILLIGRAM, QD
     Route: 042
     Dates: start: 20230627, end: 20230627
  3. VINDESINE [Suspect]
     Active Substance: VINDESINE
     Indication: Lymphoma
     Dosage: 4 MILLIGRAM, QD
     Route: 042
     Dates: start: 20230627, end: 20230627
  4. DACARBAZINE [Suspect]
     Active Substance: DACARBAZINE
     Indication: Lymphoma
     Dosage: 700 MILLIGRAM, QD
     Route: 042
     Dates: start: 20230627, end: 20230627
  5. IBUPROFEN [Suspect]
     Active Substance: IBUPROFEN
     Indication: Pneumonia
     Dosage: UNK UNK, QD
     Route: 048
     Dates: start: 20231005, end: 20231007
  6. DEXAMETHASONE [Concomitant]
     Active Substance: DEXAMETHASONE
     Indication: Prophylaxis
     Dosage: 5 MILLIGRAM, QD
     Route: 042
     Dates: start: 20230627, end: 20230627
  7. ACYCLOVIR [Concomitant]
     Active Substance: ACYCLOVIR
     Indication: Antiviral prophylaxis
     Dosage: 0.4 GRAM, BID
     Route: 048
     Dates: start: 20230627
  8. LEUCOGEN [Concomitant]
     Active Substance: LEUCOGEN
     Indication: White blood cell count increased
     Dosage: 20 MILLIGRAM, TID
     Route: 048
     Dates: start: 20230627
  9. OMEPRAZOLE SODIUM [Concomitant]
     Active Substance: OMEPRAZOLE SODIUM
     Indication: Prophylaxis
     Dosage: 0.5 MILLIGRAM, QD
     Route: 042
     Dates: start: 20230627
  10. OMEPRAZOLE SODIUM [Concomitant]
     Active Substance: OMEPRAZOLE SODIUM
     Dosage: 20 MILLIGRAM, QD
     Route: 042
     Dates: start: 20230627
  11. ACETYLCYSTEINE [Concomitant]
     Active Substance: ACETYLCYSTEINE
     Indication: Prophylaxis
     Dosage: 600 MILLIGRAM, QD
     Route: 042
     Dates: start: 20230627
  12. SODIUM BICARBONATE [Concomitant]
     Active Substance: SODIUM BICARBONATE
     Indication: Urine alkalinisation therapy
     Dosage: 250 MILLIGRAM, QD
     Route: 048
     Dates: start: 20230627, end: 202311
  13. SODIUM BICARBONATE [Concomitant]
     Active Substance: SODIUM BICARBONATE
     Indication: Urine alkalinisation therapy
  14. CEFACLOR [Concomitant]
     Active Substance: CEFACLOR
     Indication: Antiviral prophylaxis
     Dosage: 375 MILLIGRAM, BID
     Route: 048
     Dates: start: 20230627
  15. PALONOSETRON HYDROCHLORIDE [Concomitant]
     Active Substance: PALONOSETRON HYDROCHLORIDE
     Indication: Antiemetic supportive care
     Dosage: 0.5 MILLIGRAM, QD
     Route: 048
     Dates: start: 20230627, end: 202311

REACTIONS (6)
  - Drug-induced liver injury [Recovered/Resolved]
  - Pneumonia [Recovered/Resolved]
  - Dermatitis allergic [Not Recovered/Not Resolved]
  - Pyrexia [Recovered/Resolved]
  - Rash [Not Recovered/Not Resolved]
  - Off label use [Unknown]

NARRATIVE: CASE EVENT DATE: 20230627
